FAERS Safety Report 6692852-X (Version None)
Quarter: 2010Q2

REPORT INFORMATION
  Report Type: 
  Country: None (occurrence: None)
  Receive Date: 20100419
  Receipt Date: 20100409
  Transmission Date: 20101027
  Serious: Yes (Other)
  Sender: FDA-Public Use
  Company Number: 2010SP020878

PATIENT
  Age: 23 Year
  Sex: Female
  Weight: 69.8539 kg

DRUGS (1)
  1. IMPLANON [Suspect]
     Indication: DRUG USE FOR UNKNOWN INDICATION
     Dates: start: 20090804, end: 20100409

REACTIONS (2)
  - DEPRESSION [None]
  - SUICIDAL IDEATION [None]
